FAERS Safety Report 7528927-2 (Version None)
Quarter: 2011Q2

REPORT INFORMATION
  Report Type: 
  Country: None (occurrence: None)
  Receive Date: 20110520
  Receipt Date: 20110416
  Transmission Date: 20111010
  Serious: No
  Sender: FDA-Public Use
  Company Number: 023737

PATIENT
  Sex: Female
  Weight: 67 kg

DRUGS (7)
  1. TRILEPTAL [Concomitant]
  2. ZONEGRAN [Concomitant]
  3. LACOSAMIDE [Suspect]
     Indication: CONVULSION
     Dosage: (100 MG BID ORAL)
     Route: 048
     Dates: start: 20101201
  4. LACOSAMIDE [Suspect]
     Indication: EPILEPSY
     Dosage: (100 MG BID ORAL)
     Route: 048
     Dates: start: 20101201
  5. KEPPRA [Concomitant]
  6. TOPAMAX [Concomitant]
  7. PAXIL [Concomitant]

REACTIONS (1)
  - ABDOMINAL PAIN [None]
